FAERS Safety Report 6498344-5 (Version None)
Quarter: 2009Q4

REPORT INFORMATION
  Report Type: 
  Country: None (occurrence: None)
  Receive Date: 20091125
  Receipt Date: 20090629
  Transmission Date: 20100525
  Serious: Yes (Other)
  Sender: FDA-Public Use
  Company Number: 2009BH010790

PATIENT
  Age: 4 Month
  Sex: Male

DRUGS (2)
  1. DIANEAL [Suspect]
     Indication: PERITONEAL DIALYSIS
     Dosage: 2400 CC ; EVERY DAY ; IP
     Route: 033
     Dates: start: 20090214
  2. HEPARIN [Concomitant]

REACTIONS (1)
  - PERITONITIS [None]
